FAERS Safety Report 7739707-7 (Version None)
Quarter: 2011Q3

REPORT INFORMATION
  Report Type: 
  Country: None (occurrence: None)
  Receive Date: 20110909
  Receipt Date: 20110829
  Transmission Date: 20111222
  Serious: No
  Sender: FDA-Public Use
  Company Number: US-JNJFOC-20110901578

PATIENT
  Sex: Female
  Weight: 42.18 kg

DRUGS (1)
  1. DURAGESIC-100 [Suspect]
     Indication: TERMINAL STATE
     Route: 062
     Dates: start: 20110801

REACTIONS (5)
  - DRUG EFFECT DECREASED [None]
  - PRODUCT ADHESION ISSUE [None]
  - HYPERHIDROSIS [None]
  - MALAISE [None]
  - WRONG TECHNIQUE IN DRUG USAGE PROCESS [None]
